FAERS Safety Report 9106368 (Version 2)
Quarter: 2013Q1

REPORT INFORMATION
  Report Type: Spontaneous
  Country: DE (occurrence: DE)
  Receive Date: 20130220
  Receipt Date: 20130318
  Transmission Date: 20140127
  Serious: Yes (Other)
  Sender: FDA-Public Use
  Company Number: DE-JNJFOC-20130209205

PATIENT
  Sex: Female
  Weight: 75 kg

DRUGS (13)
  1. XARELTO [Suspect]
     Indication: CEREBROVASCULAR ACCIDENT PROPHYLAXIS
     Route: 048
     Dates: start: 201209, end: 201212
  2. XARELTO [Suspect]
     Indication: CEREBROVASCULAR ACCIDENT PROPHYLAXIS
     Route: 048
     Dates: start: 201208, end: 201209
  3. XARELTO [Suspect]
     Indication: ATRIAL FIBRILLATION
     Route: 048
     Dates: start: 201209, end: 201212
  4. XARELTO [Suspect]
     Indication: ATRIAL FIBRILLATION
     Route: 048
     Dates: start: 201208, end: 201209
  5. MIRTAZAPIN [Suspect]
     Indication: SLEEP DISORDER
     Route: 065
  6. MIRTAZAPIN [Suspect]
     Indication: DEPRESSION
     Route: 065
  7. CORTISON [Suspect]
     Indication: PRURITUS
     Route: 065
  8. SPIRONOLACTONE [Suspect]
     Indication: PRODUCT USED FOR UNKNOWN INDICATION
     Route: 065
  9. METOPROLOL [Suspect]
     Indication: TACHYCARDIA
     Route: 065
  10. METOPROLOL [Suspect]
     Indication: HYPERTENSION
     Route: 065
  11. CITALOPRAM [Suspect]
     Indication: DEPRESSION
     Route: 065
  12. HYDROCHLOROTHIAZID [Suspect]
     Indication: CARDIAC FAILURE
     Route: 065
  13. HYDROCHLOROTHIAZID [Suspect]
     Indication: HYPERTENSION
     Route: 065

REACTIONS (1)
  - Pemphigoid [Recovering/Resolving]
